FAERS Safety Report 8601263-9 (Version None)
Quarter: 2012Q3

REPORT INFORMATION
  Report Type: 
  Country: None (occurrence: None)
  Receive Date: 20120805
  Receipt Date: 20120731
  Transmission Date: 20120928
  Serious: Yes (Hospitalization)
  Sender: FDA-Public Use
  Company Number: US-008185

PATIENT
  Age: 40 Year
  Sex: Female
  Weight: 67.586 kg

DRUGS (1)
  1. TRANEXAMIC ACID [Suspect]
     Indication: MENORRHAGIA
     Dates: start: 20110906

REACTIONS (1)
  - PULMONARY EMBOLISM [None]
